FAERS Safety Report 9114730 (Version 2)
Quarter: 2013Q1

REPORT INFORMATION
  Report Type: Spontaneous
  Country: US (occurrence: None)
  Receive Date: 20130129
  Receipt Date: 20130307
  Transmission Date: 20140127
  Serious: Yes (Other)
  Sender: FDA-Public Use
  Company Number: AUR-APL-2013-00994

PATIENT
  Age: 62 Year
  Sex: Female
  Weight: 61.24 kg

DRUGS (4)
  1. SIMVASTATIN [Suspect]
     Indication: BLOOD CHOLESTEROL
     Route: 048
     Dates: start: 201207
  2. VESICARE (SOLIFENACIN) [Concomitant]
  3. VITAMINS [Concomitant]
  4. OMEGA-3 (FISH OIL) [Concomitant]

REACTIONS (2)
  - Dizziness [None]
  - Presyncope [None]
